FAERS Safety Report 14303567 (Version 1)
Quarter: 2017Q4

REPORT INFORMATION
  Report Type: Spontaneous
  Country: JP (occurrence: JP)
  Receive Date: 20171219
  Receipt Date: 20171219
  Transmission Date: 20180321
  Serious: Yes (Hospitalization)
  Sender: FDA-Public Use
  Company Number: JP-OTSUKA-2016_015146

PATIENT
  Sex: Female

DRUGS (16)
  1. ABILIFY [Suspect]
     Active Substance: ARIPIPRAZOLE
     Indication: PSYCHOMOTOR HYPERACTIVITY
  2. ABILIFY [Suspect]
     Active Substance: ARIPIPRAZOLE
     Indication: DELUSION
     Dosage: 1 DF, QD (BEDTIME)
     Route: 065
     Dates: start: 20160727, end: 20160801
  3. ABILIFY [Suspect]
     Active Substance: ARIPIPRAZOLE
     Indication: DELUSION
     Dosage: 1 DF, QD, (BEDTIME)
     Route: 048
     Dates: start: 20160803, end: 20161008
  4. ABILIFY [Suspect]
     Active Substance: ARIPIPRAZOLE
     Indication: SCHIZOPHRENIA
     Dosage: 6 MG, QD
     Route: 048
     Dates: end: 201606
  5. ABILIFY [Suspect]
     Active Substance: ARIPIPRAZOLE
     Indication: HALLUCINATION
     Dosage: 1 DF, QD (BEDTIME)
     Route: 048
     Dates: start: 20160617, end: 20160623
  6. ABILIFY [Suspect]
     Active Substance: ARIPIPRAZOLE
     Indication: HALLUCINATION
  7. ABILIFY [Suspect]
     Active Substance: ARIPIPRAZOLE
     Indication: HALLUCINATION
     Dosage: 1 DF, QD
     Route: 048
     Dates: start: 20160620, end: 20160726
  8. ABILIFY [Suspect]
     Active Substance: ARIPIPRAZOLE
     Indication: PSYCHOMOTOR HYPERACTIVITY
  9. LENDORMIN [Concomitant]
     Active Substance: BROTIZOLAM
     Indication: PRODUCT USED FOR UNKNOWN INDICATION
     Dosage: 1 DF, WHEN HAVING INSOMNIA
     Route: 065
  10. ABILIFY [Suspect]
     Active Substance: ARIPIPRAZOLE
     Indication: DELUSION
  11. ABILIFY [Suspect]
     Active Substance: ARIPIPRAZOLE
     Indication: PSYCHOMOTOR HYPERACTIVITY
     Dosage: 1 DF, QD (AFTER BREAKFAST)
     Route: 065
     Dates: start: 20160802, end: 20160802
  12. ABILIFY [Suspect]
     Active Substance: ARIPIPRAZOLE
     Indication: PSYCHOMOTOR HYPERACTIVITY
     Dosage: 1 DF, QD
     Route: 048
     Dates: start: 20161014, end: 20161027
  13. ABILIFY [Suspect]
     Active Substance: ARIPIPRAZOLE
     Indication: HALLUCINATION
     Dosage: 1 PACKAGE, (WHEN HAVING RESTLESSNESS)
     Route: 065
  14. ABILIFY [Suspect]
     Active Substance: ARIPIPRAZOLE
     Indication: DELUSION
  15. BELSOMRA [Concomitant]
     Active Substance: SUVOREXANT
     Indication: PRODUCT USED FOR UNKNOWN INDICATION
     Dosage: 1 DF, QD (BEDTIME)
     Route: 065
     Dates: start: 20160701, end: 20160713
  16. METHYCOBAL [Concomitant]
     Active Substance: METHYLCOBALAMIN
     Indication: PRODUCT USED FOR UNKNOWN INDICATION
     Dosage: 1 DF, TID, (AFTER THREE MEALS)
     Route: 065
     Dates: start: 20160624, end: 20160721

REACTIONS (7)
  - Psychomotor hyperactivity [Unknown]
  - Restlessness [Unknown]
  - Stupor [Unknown]
  - Speech disorder [Unknown]
  - Insomnia [Unknown]
  - Abnormal behaviour [Unknown]
  - Psychiatric symptom [Unknown]
